FAERS Safety Report 7335547-1 (Version None)
Quarter: 2011Q1

REPORT INFORMATION
  Report Type: 
  Country: None (occurrence: None)
  Receive Date: 20110307
  Receipt Date: 20110224
  Transmission Date: 20110831
  Serious: Yes (Other)
  Sender: FDA-Public Use
  Company Number: BR-PFIZER INC-2011040315

PATIENT
  Age: 42 Year
  Sex: Male
  Weight: 98 kg

DRUGS (2)
  1. VIAGRA [Suspect]
     Indication: ERECTILE DYSFUNCTION
     Dosage: UNK, EVERY 3 DAYS
     Route: 048
     Dates: start: 20040101
  2. NPH INSULIN [Concomitant]
     Dosage: 30 UI

REACTIONS (4)
  - ROAD TRAFFIC ACCIDENT [None]
  - BLOOD GLUCOSE ABNORMAL [None]
  - PENIS DISORDER [None]
  - DRUG INEFFECTIVE [None]
